FAERS Safety Report 13801604 (Version 4)
Quarter: 2019Q1

REPORT INFORMATION
  Report Type: Report from Study
  Country: US (occurrence: US)
  Receive Date: 20170727
  Receipt Date: 20190205
  Transmission Date: 20190417
  Serious: Yes (Other)
  Sender: FDA-Public Use
  Company Number: US-SA-2017SA134816

PATIENT
  Age: 40 Year
  Sex: Female

DRUGS (2)
  1. TERIFLUNOMIDE. [Suspect]
     Active Substance: TERIFLUNOMIDE
     Indication: MULTIPLE SCLEROSIS
     Dosage: 14 MG, QD
     Route: 048
     Dates: start: 20170217
  2. TERIFLUNOMIDE. [Suspect]
     Active Substance: TERIFLUNOMIDE
     Dosage: 14 MG, QD
     Route: 048
     Dates: start: 20170719

REACTIONS (10)
  - Skin discolouration [Not Recovered/Not Resolved]
  - Paraesthesia [Unknown]
  - Balance disorder [Not Recovered/Not Resolved]
  - Erythema [Unknown]
  - Procedural haemorrhage [Not Recovered/Not Resolved]
  - Pain [Recovered/Resolved]
  - Atrial septal defect [Not Recovered/Not Resolved]
  - Surgery [Not Recovered/Not Resolved]
  - Cerebrovascular accident [Not Recovered/Not Resolved]
  - Pruritus [Not Recovered/Not Resolved]

NARRATIVE: CASE EVENT DATE: 2017
